FAERS Safety Report 24987666 (Version 3)
Quarter: 2025Q1

REPORT INFORMATION
  Report Type: Spontaneous
  Country: FR (occurrence: FR)
  Receive Date: 20250219
  Receipt Date: 20250328
  Transmission Date: 20250409
  Serious: Yes (Hospitalization, Other)
  Sender: SANOFI AVENTIS
  Company Number: FR-BIOVITRUM-2025-FR-002181

PATIENT
  Age: 87 Year
  Sex: Male
  Weight: 82 kg

DRUGS (3)
  1. ALTUVIIIO [Suspect]
     Active Substance: EFANESOCTOCOG ALFA
     Indication: Factor VIII deficiency
     Route: 065
     Dates: start: 20241015, end: 20250128
  2. ELOCTA [Suspect]
     Active Substance: EFMOROCTOCOG ALFA
     Indication: Factor VIII deficiency
     Dosage: UNK UNK, BID
     Route: 065
     Dates: start: 20250130
  3. ELOCTA [Suspect]
     Active Substance: EFMOROCTOCOG ALFA
     Indication: Factor VIII deficiency
     Dosage: UNK UNK, BID
     Route: 065
     Dates: start: 20250130

REACTIONS (2)
  - Abdominal wall haematoma [Unknown]
  - Cardiac disorder [Unknown]

NARRATIVE: CASE EVENT DATE: 20250101
